FAERS Safety Report 7285510-4 (Version None)
Quarter: 2011Q1

REPORT INFORMATION
  Report Type: 
  Country: None (occurrence: None)
  Receive Date: 20110210
  Receipt Date: 20110117
  Transmission Date: 20110831
  Serious: Yes (Other)
  Sender: FDA-Public Use
  Company Number: VE-ASTRAZENECA-2011SE07490

PATIENT
  Age: 47 Year
  Sex: Male

DRUGS (6)
  1. ATACAND [Suspect]
     Indication: HYPERTENSION
     Route: 048
     Dates: start: 20050101
  2. ATACAND [Suspect]
     Route: 048
     Dates: start: 20110110, end: 20110114
  3. CORASPIRINA [Concomitant]
  4. ATACAND [Suspect]
     Route: 048
  5. CADUET [Concomitant]
  6. CRESTOR [Concomitant]
     Route: 048

REACTIONS (4)
  - VISION BLURRED [None]
  - HEADACHE [None]
  - DRUG INEFFECTIVE [None]
  - HYPERTENSION [None]
